FAERS Safety Report 4478996-1 (Version None)
Quarter: 2004Q4

REPORT INFORMATION
  Report Type: 
  Country: None (occurrence: None)
  Receive Date: 20041015
  Receipt Date: 20040930
  Transmission Date: 20050328
  Serious: Yes (Hospitalization)
  Sender: FDA-Public Use
  Company Number: A01200404801

PATIENT
  Sex: Male

DRUGS (9)
  1. (CLOPIDOGREL) - TABLET - 75 MG [Suspect]
     Dosage: 75 MG QD   ORAL
     Route: 048
     Dates: start: 20030619, end: 20031013
  2. PREDNISOLONE [Concomitant]
  3. COLCHICINE [Concomitant]
  4. PERINDOPRIL [Concomitant]
  5. AMLODIPINE [Concomitant]
  6. CALTRATE(CALCIUM CARBONATE) [Concomitant]
  7. QUININE [Concomitant]
  8. PRAVASTATIN [Concomitant]
  9. EPO(ERYTHROPOIETIN HUMAN) [Concomitant]

REACTIONS (2)
  - NIGHT SWEATS [None]
  - RASH [None]
